FAERS Safety Report 5130802-8 (Version None)
Quarter: 2006Q4

REPORT INFORMATION
  Report Type: 
  Country: None (occurrence: None)
  Receive Date: 20061013
  Receipt Date: 20061003
  Transmission Date: 20070319
  Serious: Yes (Hospitalization)
  Sender: FDA-Public Use
  Company Number: 2006120182

PATIENT
  Age: 76 Year
  Sex: Female
  Weight: 54.4316 kg

DRUGS (19)
  1. SINEQUAN [Suspect]
     Indication: PRURITUS
     Dosage: 30 MG, ORAL
     Route: 048
     Dates: start: 20010101
  2. ALL OTHER THERAPEUTIC PRODUCTS (ALL OTHER THERAPEUTIC PRODUCTS) [Suspect]
     Dates: start: 20030101, end: 20040101
  3. IMDUR [Concomitant]
  4. PRILOSEC [Concomitant]
  5. SYNTHROID [Concomitant]
  6. NEURONTIN [Concomitant]
  7. ZETIA [Concomitant]
  8. ALLOPURINOL [Concomitant]
  9. ZYRTEC [Concomitant]
  10. STARLIX [Concomitant]
  11. NORVASC [Concomitant]
  12. PHOSLO [Concomitant]
  13. DIOVAN [Concomitant]
  14. FISH OIL (FISH OIL) [Concomitant]
  15. DIAZEPAM [Concomitant]
  16. LASIX [Concomitant]
  17. LIPITOR [Concomitant]
  18. DARVOCET [Concomitant]
  19. TRICOR [Concomitant]

REACTIONS (2)
  - REACTION TO DRUG EXCIPIENTS [None]
  - THERAPEUTIC RESPONSE UNEXPECTED WITH DRUG SUBSTITUTION [None]
